FAERS Safety Report 14853940 (Version 1)
Quarter: 2018Q2

REPORT INFORMATION
  Report Type: Spontaneous
  Country: FR (occurrence: FR)
  Receive Date: 20180507
  Receipt Date: 20180507
  Transmission Date: 20180711
  Serious: Yes (Hospitalization, Other)
  Sender: FDA-Public Use
  Company Number: FR-ELI_LILLY_AND_COMPANY-FR201804012465

PATIENT
  Age: 44 Year
  Sex: Male

DRUGS (1)
  1. ZYPADHERA [Suspect]
     Active Substance: OLANZAPINE PAMOATE
     Indication: SCHIZOPHRENIA
     Dosage: 300 MG, MONTHLY (1/M)
     Route: 030

REACTIONS (5)
  - Feeling abnormal [Unknown]
  - Delirium [Unknown]
  - Pneumothorax [Unknown]
  - Fall [Unknown]
  - Rib fracture [Unknown]

NARRATIVE: CASE EVENT DATE: 201804
